FAERS Safety Report 6987126-3 (Version None)
Quarter: 2010Q3

REPORT INFORMATION
  Report Type: 
  Country: None (occurrence: None)
  Receive Date: 20100916
  Receipt Date: 20100910
  Transmission Date: 20110219
  Serious: Yes (Death, Hospitalization, Other)
  Sender: FDA-Public Use
  Company Number: US-JNJFOC-20061103138

PATIENT
  Sex: Male
  Weight: 61.24 kg

DRUGS (5)
  1. HALDOL [Suspect]
     Indication: SCHIZOPHRENIA
     Route: 030
     Dates: start: 20020101, end: 20020101
  2. HALDOL [Suspect]
     Indication: DELIRIUM
     Route: 030
     Dates: start: 20020101, end: 20020101
  3. HALDOL [Suspect]
     Indication: AGITATION
     Route: 042
  4. COUMADIN [Concomitant]
     Indication: THROMBOSIS
     Route: 048
  5. COUMADIN [Concomitant]
     Indication: ATRIAL FIBRILLATION
     Route: 048

REACTIONS (8)
  - CARDIAC ARREST [None]
  - INCORRECT ROUTE OF DRUG ADMINISTRATION [None]
  - MENTAL STATUS CHANGES [None]
  - MYOCARDIAL INFARCTION [None]
  - PULMONARY EMBOLISM [None]
  - PULMONARY HAEMORRHAGE [None]
  - PULMONARY OEDEMA [None]
  - THROMBOSIS [None]
